FAERS Safety Report 18580950 (Version 1)
Quarter: 2020Q4

REPORT INFORMATION
  Report Type: Spontaneous
  Country: AU (occurrence: AU)
  Receive Date: 20201204
  Receipt Date: 20201204
  Transmission Date: 20210114
  Serious: Yes (Death, Congenital Anomaly, Other)
  Sender: FDA-Public Use
  Company Number: AU-PFIZER INC-2020479243

PATIENT
  Age: 10 Day
  Sex: Male
  Weight: 2.94 kg

DRUGS (1)
  1. SULFASALAZINE. [Suspect]
     Active Substance: SULFASALAZINE
     Indication: COLITIS ULCERATIVE
     Dosage: 1 G, DAILY
     Route: 064

REACTIONS (4)
  - Coarctation of the aorta [Fatal]
  - Ventricular septal defect [Fatal]
  - Teratogenicity [Fatal]
  - Maternal exposure during pregnancy [Fatal]
